FAERS Safety Report 12421214 (Version 1)
Quarter: 2016Q2

REPORT INFORMATION
  Report Type: Spontaneous
  Country: IT (occurrence: IT)
  Receive Date: 20160531
  Receipt Date: 20160531
  Transmission Date: 20160815
  Serious: Yes (Other)
  Sender: FDA-Public Use
  Company Number: IT-MYLANLABS-2016M1021817

PATIENT

DRUGS (6)
  1. OLANZAPINE. [Suspect]
     Active Substance: OLANZAPINE
     Indication: CONFUSIONAL STATE
     Dosage: UNK
  2. OLANZAPINE. [Suspect]
     Active Substance: OLANZAPINE
     Indication: ABNORMAL BEHAVIOUR
  3. HALOPERIDOL. [Suspect]
     Active Substance: HALOPERIDOL
     Indication: ABNORMAL BEHAVIOUR
  4. VALPROIC ACID. [Suspect]
     Active Substance: VALPROIC ACID
     Indication: EPILEPSY
  5. HALOPERIDOL. [Suspect]
     Active Substance: HALOPERIDOL
     Indication: CONFUSIONAL STATE
     Dosage: UNK
  6. FLECAINIDE [Concomitant]
     Active Substance: FLECAINIDE
     Indication: ARRHYTHMIA
     Dosage: UNK

REACTIONS (2)
  - Parkinsonism [Recovering/Resolving]
  - Cognitive disorder [Recovered/Resolved]
